FAERS Safety Report 6111676-5 (Version None)
Quarter: 2009Q1

REPORT INFORMATION
  Report Type: 
  Country: None (occurrence: None)
  Receive Date: 20090310
  Receipt Date: 20090310
  Transmission Date: 20090719
  Serious: Yes (Other)
  Sender: FDA-Public Use
  Company Number: None

PATIENT
  Age: 69 Year
  Sex: Male
  Weight: 81.6475 kg

DRUGS (1)
  1. GABAPENTIN [Suspect]

REACTIONS (4)
  - CONDITION AGGRAVATED [None]
  - INSOMNIA [None]
  - NEUROPATHY PERIPHERAL [None]
  - THERAPEUTIC RESPONSE UNEXPECTED WITH DRUG SUBSTITUTION [None]
